FAERS Safety Report 6620732-4 (Version None)
Quarter: 2010Q1

REPORT INFORMATION
  Report Type: 
  Country: None (occurrence: None)
  Receive Date: 20100303
  Receipt Date: 20100216
  Transmission Date: 20100710
  Serious: Yes (Death)
  Sender: FDA-Public Use
  Company Number: 2010020068

PATIENT
  Age: 47 Year
  Sex: Female

DRUGS (2)
  1. CARISOPRODOL [Suspect]
     Dosage: ORAL
     Route: 048
  2. ACETAMINOPHEN AND HYDROCODONE BITARTRATE [Suspect]
     Dosage: (100 DOSAGE FORMS), ORAL
     Route: 048

REACTIONS (10)
  - BRAIN OEDEMA [None]
  - COMPLETED SUICIDE [None]
  - CONVULSION [None]
  - DRUG TOXICITY [None]
  - HEPATIC FAILURE [None]
  - HYPOTENSION [None]
  - INTERNATIONAL NORMALISED RATIO INCREASED [None]
  - MULTI-ORGAN FAILURE [None]
  - RESPIRATORY DISORDER [None]
  - UNRESPONSIVE TO STIMULI [None]
